FAERS Safety Report 8332631-0 (Version None)
Quarter: 2012Q2

REPORT INFORMATION
  Report Type: 
  Country: None (occurrence: None)
  Receive Date: 20120503
  Receipt Date: 20120418
  Transmission Date: 20120825
  Serious: Yes (Disabling, Other)
  Sender: FDA-Public Use
  Company Number: CN-JNJFOC-20120413808

PATIENT
  Sex: Female

DRUGS (5)
  1. RISPERIDONE [Suspect]
     Dosage: ONCE A DAY, ONE AT ATIME
     Route: 048
     Dates: start: 20080901, end: 20110828
  2. RISPERIDONE [Suspect]
     Indication: SCHIZOPHRENIA
     Dosage: ONCE A DAY, ONE AND A HALF AT A TIME
     Route: 048
     Dates: start: 20041101
  3. RISPERIDONE [Suspect]
     Route: 048
     Dates: start: 20011201, end: 20040801
  4. ARTANE [Concomitant]
     Route: 065
     Dates: start: 20080901, end: 20090101
  5. RISPERIDONE [Suspect]
     Dosage: ONE IN THE MORNING, HALF AT NIGHT,  DURING WHICH THEY HAD TAKEN A TIMES A DAY , EVERY ONE AND A HALF
     Route: 048
     Dates: start: 20010628, end: 20011201

REACTIONS (6)
  - DYSKINESIA [None]
  - JOINT STIFFNESS [None]
  - GAIT DISTURBANCE [None]
  - TREATMENT NONCOMPLIANCE [None]
  - TREMOR [None]
  - MOUTH ULCERATION [None]
